FAERS Safety Report 4782666-X (Version None)
Quarter: 2005Q3

REPORT INFORMATION
  Report Type: 
  Country: None (occurrence: None)
  Receive Date: 20050929
  Receipt Date: 20050621
  Transmission Date: 20060218
  Serious: No
  Sender: FDA-Public Use
  Company Number: 409724

PATIENT
  Age: 62 Year
  Sex: Female

DRUGS (9)
  1. COREG [Suspect]
     Indication: HYPERTENSION
     Dosage: 25MG TWICE PER DAY
     Route: 048
     Dates: start: 20040401
  2. TIAZAC [Concomitant]
  3. ATACAND HCT [Concomitant]
  4. XANAX [Concomitant]
  5. ATACAND [Concomitant]
  6. ASPIRIN [Concomitant]
  7. ASTELIN [Concomitant]
  8. OPTIVAR [Concomitant]
  9. ALLEGRA [Concomitant]

REACTIONS (6)
  - LIP DISORDER [None]
  - NASAL SINUS DRAINAGE [None]
  - OEDEMA [None]
  - ORAL MUCOSAL DISORDER [None]
  - SINUS CONGESTION [None]
  - TENDONITIS [None]
